FAERS Safety Report 7897229-7 (Version None)
Quarter: 2011Q4

REPORT INFORMATION
  Report Type: 
  Country: None (occurrence: None)
  Receive Date: 20111103
  Receipt Date: 20111027
  Transmission Date: 20120403
  Serious: Yes (Other)
  Sender: FDA-Public Use
  Company Number: 2011GW000518

PATIENT
  Age: 61 Year
  Sex: Male
  Weight: 79.3795 kg

DRUGS (2)
  1. IMIQUIMOD [Concomitant]
  2. ZYCLARA [Suspect]
     Indication: ACTINIC KERATOSIS
     Dosage: 3.75 PCT; X1; TOP
     Route: 061
     Dates: start: 20110918, end: 20110918

REACTIONS (8)
  - APPLICATION SITE INFLAMMATION [None]
  - MALAISE [None]
  - APPLICATION SITE SWELLING [None]
  - TRIGEMINAL NEURALGIA [None]
  - ARRHYTHMIA [None]
  - VASCULAR HEADACHE [None]
  - INFLUENZA LIKE ILLNESS [None]
  - APPLICATION SITE SCAB [None]
